FAERS Safety Report 9169891 (Version 1)
Quarter: 2013Q1

REPORT INFORMATION
  Report Type: Spontaneous
  Country: JP (occurrence: None)
  Receive Date: 20130307
  Receipt Date: 20130307
  Transmission Date: 20140127
  Serious: Yes (Other)
  Sender: FDA-Public Use
  Company Number: TCI2012A07429

PATIENT
  Age: 80 Year
  Sex: Male

DRUGS (12)
  1. ACTOS [Suspect]
     Indication: DIABETES MELLITUS
     Route: 048
     Dates: start: 20061216, end: 20121215
  2. AMARYL (GLIMEPIRIDE) [Suspect]
     Route: 048
     Dates: end: 20070921
  3. 2MG CERCINE TABLETS [Concomitant]
  4. CONEIL [Concomitant]
  5. NOVAMIN [Concomitant]
  6. GASTER [Concomitant]
  7. DEPAS [Concomitant]
  8. LENDORMIN [Concomitant]
  9. FLUTIDE AEROSOL [Concomitant]
  10. SALIVEHT ABROSOL [Concomitant]
  11. BUFFERIN [Concomitant]
  12. MERISLON [Concomitant]

REACTIONS (6)
  - Hypoglycaemia [None]
  - Asthma [None]
  - Nasal dryness [None]
  - Emphysema [None]
  - Transitional cell carcinoma [None]
  - Ureteric cancer [None]
